FAERS Safety Report 14978696 (Version 3)
Quarter: 2024Q2

REPORT INFORMATION
  Report Type: Spontaneous
  Country: RO (occurrence: RO)
  Receive Date: 20180606
  Receipt Date: 20240524
  Transmission Date: 20240716
  Serious: Yes (Hospitalization, Other)
  Sender: FDA-Public Use
  Company Number: RO-AUROBINDO-AUR-APL-2018-028861

PATIENT
  Age: 19 Year
  Sex: Female
  Weight: 45.6 kg

DRUGS (10)
  1. SERTRALINE [Suspect]
     Active Substance: SERTRALINE HYDROCHLORIDE
     Indication: Depression
     Dosage: 100 MILLIGRAM, ONCE A DAY, TWO TABLETS PER DAY
     Route: 065
  2. VITAMIN B6 [Concomitant]
     Active Substance: PYRIDOXINE HYDROCHLORIDE
     Indication: Product used for unknown indication
     Dosage: INJECTION FOR TWO WEEKS
     Route: 065
  3. VITAMIN B6 [Concomitant]
     Active Substance: PYRIDOXINE HYDROCHLORIDE
     Dosage: INJECTION FOR TWO WEEKS ()
  4. MALTOFER                           /00023548/ [Concomitant]
     Indication: Anaemia
     Dosage: 2 DOSAGE FORM, ONCE A DAY, TWO TABLETS PER DAY
     Route: 065
  5. THIAMINE [Concomitant]
     Active Substance: THIAMINE
     Indication: Product used for unknown indication
     Dosage: INJECTION FOR TWO WEEKS
     Route: 065
  6. ACUTIL [Concomitant]
     Indication: Product used for unknown indication
     Dosage: 1 DOSAGE FORM, ONCE A DAY, 1 TABLET PER DAY
     Route: 065
  7. ACUTIL [Concomitant]
     Dosage: 1 TABLET PER DAY
  8. FEROFOL [Concomitant]
     Indication: Anaemia
     Dosage: 3 DOSAGE FORM, ONCE A DAY, THREE TABLETS PER DAY
     Route: 065
  9. OLANZAPINE [Concomitant]
     Active Substance: OLANZAPINE
     Indication: Anorexia nervosa
     Dosage: 10 MILLIGRAM, ONCE A DAY, 1 TABLET PER DAY
     Route: 065
  10. OLANZAPINE [Concomitant]
     Active Substance: OLANZAPINE
     Dosage: 1 TABLET PER DAY

REACTIONS (2)
  - Suicide attempt [Recovered/Resolved]
  - Weight decreased [Recovered/Resolved]
